FAERS Safety Report 17410503 (Version 1)
Quarter: 2020Q1

REPORT INFORMATION
  Report Type: Spontaneous
  Country: DE (occurrence: DE)
  Receive Date: 20200212
  Receipt Date: 20200212
  Transmission Date: 20200409
  Serious: Yes (Hospitalization)
  Sender: FDA-Public Use
  Company Number: DE-MYLANLABS-2020M1015451

PATIENT
  Age: 60 Year
  Sex: Female

DRUGS (7)
  1. OMEPRAZOL                          /00661201/ [Concomitant]
     Active Substance: OMEPRAZOLE
     Dosage: 20 MILLIGRAM (20 MG, 0-0-1-0)
  2. OXYCODONE [Suspect]
     Active Substance: OXYCODONE
     Indication: PRODUCT USED FOR UNKNOWN INDICATION
     Dosage: 60 MILLIGRAM (60 MG, 0-0-1-1)
  3. MELPERONE [Concomitant]
     Active Substance: MELPERONE
     Dosage: 100 MILLIGRAM (100 MG, 0-0-1-0)
  4. OXYCODONE [Suspect]
     Active Substance: OXYCODONE
     Dosage: 40 MILLIGRAM (40 MG, 1-1-0-0)
  5. QUETIAPINE. [Suspect]
     Active Substance: QUETIAPINE
     Indication: PRODUCT USED FOR UNKNOWN INDICATION
     Dosage: 50 MILLIGRAM (50 MG, 1-1-1-0)
  6. TORASEMID [Concomitant]
     Active Substance: TORSEMIDE
     Dosage: 20 MILLIGRAM (20 MG, 2-1-0-0)
  7. PREGABALIN. [Suspect]
     Active Substance: PREGABALIN
     Indication: PRODUCT USED FOR UNKNOWN INDICATION
     Dosage: 50 MILLIGRAM (50 MG, 1-1-1-0)

REACTIONS (3)
  - Accidental overdose [Unknown]
  - Somnolence [Unknown]
  - Constipation [Unknown]
